FAERS Safety Report 13557123 (Version 1)
Quarter: 2017Q2

REPORT INFORMATION
  Report Type: Spontaneous
  Country: US (occurrence: US)
  Receive Date: 20170517
  Receipt Date: 20170517
  Transmission Date: 20170830
  Serious: Yes (Disabling)
  Sender: FDA-Public Use
  Company Number: None

PATIENT
  Age: 88 Year
  Sex: Male
  Weight: 81 kg

DRUGS (7)
  1. AMLODIPINE [Concomitant]
     Active Substance: AMLODIPINE BESYLATE
  2. 81 ASPIRIN [Concomitant]
  3. VALSARTAN. [Concomitant]
     Active Substance: VALSARTAN
  4. BEANO DIETARY SUPPLEMENT [Concomitant]
  5. ATROVASTATIN [Suspect]
     Active Substance: ATORVASTATIN CALCIUM
     Indication: BLOOD CHOLESTEROL ABNORMAL
     Route: 048
     Dates: start: 20161219, end: 20170217
  6. ROSUVASTATIN. [Suspect]
     Active Substance: ROSUVASTATIN
     Indication: BLOOD CHOLESTEROL ABNORMAL
     Dosage: ?          QUANTITY:90 TABLET(S);?
     Route: 048
     Dates: start: 20170404, end: 20170410
  7. DIARY TOLERANCE ENZYME [Concomitant]

REACTIONS (7)
  - Insomnia [None]
  - Dyspepsia [None]
  - Chromaturia [None]
  - Myalgia [None]
  - Pollakiuria [None]
  - Muscle disorder [None]
  - Arthritis [None]

NARRATIVE: CASE EVENT DATE: 20170410
